FAERS Safety Report 5782563-7 (Version None)
Quarter: 2008Q2

REPORT INFORMATION
  Report Type: 
  Country: None (occurrence: None)
  Receive Date: 20080623
  Receipt Date: 20080611
  Transmission Date: 20081010
  Serious: Yes (Hospitalization)
  Sender: FDA-Public Use
  Company Number: FR-PFIZER INC-2008049792

PATIENT
  Sex: Male

DRUGS (8)
  1. ZITHROMAX [Suspect]
     Indication: BRONCHITIS
     Route: 048
     Dates: start: 20080516, end: 20080521
  2. ROCEPHIN [Suspect]
     Indication: BRONCHITIS
     Route: 042
     Dates: start: 20080516, end: 20080521
  3. SOLUPRED [Concomitant]
  4. DILTIAZEM HYDROCHLORIDE [Concomitant]
  5. PANTOPRAZOLE SODIUM [Concomitant]
  6. NOVONORM [Concomitant]
  7. IMOVANE [Concomitant]
  8. LASIX [Concomitant]
     Route: 042

REACTIONS (4)
  - CHEILITIS [None]
  - DERMATITIS BULLOUS [None]
  - ERYTHEMA [None]
  - TOXIC SKIN ERUPTION [None]
